FAERS Safety Report 11315517 (Version 2)
Quarter: 2015Q3

REPORT INFORMATION
  Report Type: Report from Study
  Country: US (occurrence: US)
  Receive Date: 20150728
  Receipt Date: 20150908
  Transmission Date: 20151125
  Serious: No
  Sender: FDA-Public Use
  Company Number: PHEH2015US002669

PATIENT
  Sex: Male
  Weight: 72.56 kg

DRUGS (1)
  1. GILENYA [Suspect]
     Active Substance: FINGOLIMOD HYDROCHLORIDE
     Indication: MULTIPLE SCLEROSIS
     Dosage: 0.5 MG, QD
     Route: 048
     Dates: start: 20140212

REACTIONS (6)
  - Chills [Unknown]
  - Feeling abnormal [Recovering/Resolving]
  - Hyperhidrosis [Unknown]
  - Influenza [Unknown]
  - White blood cell count decreased [Unknown]
  - Malaise [Unknown]
